FAERS Safety Report 4659297-5 (Version None)
Quarter: 2005Q2

REPORT INFORMATION
  Report Type: 
  Country: None (occurrence: None)
  Receive Date: 20050510
  Receipt Date: 20050425
  Transmission Date: 20051028
  Serious: Yes (Death)
  Sender: FDA-Public Use
  Company Number: B0379606A

PATIENT
  Sex: 0

DRUGS (5)
  1. ALKERAN INJECTABLE (MELPHALAN) [Suspect]
     Indication: NEOPLASM MALIGNANT
     Dosage: INTRAVENOUS INFUS
     Route: 042
  2. DOCETAXEL (DOCETAXEL) [Suspect]
     Indication: NEOPLASM MALIGNANT
     Dosage: INTRAVENOUS INFUS
     Route: 042
  3. CARBOPLATIN [Suspect]
     Indication: NEOPLASM MALIGNANT
     Dosage: INTRAVENOUS INFUS
     Route: 042
  4. SODIUM CHLORIDE [Concomitant]
  5. ANTI-EMETIC [Concomitant]

REACTIONS (3)
  - HEPATIC CIRRHOSIS [None]
  - HEPATIC NECROSIS [None]
  - HEPATOTOXICITY [None]
